FAERS Safety Report 8010866-4 (Version None)
Quarter: 2011Q4

REPORT INFORMATION
  Report Type: 
  Country: None (occurrence: None)
  Receive Date: 20111228
  Receipt Date: 20111215
  Transmission Date: 20120403
  Serious: Yes (Hospitalization, Other)
  Sender: FDA-Public Use
  Company Number: US-ELI_LILLY_AND_COMPANY-US201107003469

PATIENT
  Sex: Female

DRUGS (2)
  1. FORTEO [Suspect]
     Indication: OSTEOPOROSIS
     Dosage: 20 UG, QD
     Dates: start: 20110601
  2. FORTEO [Suspect]
     Dosage: 20 UG, QD

REACTIONS (4)
  - INJECTION SITE HAEMATOMA [None]
  - DIZZINESS [None]
  - FALL [None]
  - CONTUSION [None]
